FAERS Safety Report 6129261-8 (Version None)
Quarter: 2009Q1

REPORT INFORMATION
  Report Type: 
  Country: None (occurrence: None)
  Receive Date: 20090324
  Receipt Date: 20090317
  Transmission Date: 20090719
  Serious: Yes (Other)
  Sender: FDA-Public Use
  Company Number: US-BAYER-200911672NA

PATIENT
  Age: 60 Year
  Sex: Male

DRUGS (2)
  1. LEVITRA [Suspect]
     Indication: DRUG USE FOR UNKNOWN INDICATION
  2. TRAVATAN [Concomitant]
     Indication: GLAUCOMA
     Route: 031

REACTIONS (2)
  - EYE PAIN [None]
  - INTRAOCULAR PRESSURE INCREASED [None]
